FAERS Safety Report 8338684-8 (Version None)
Quarter: 2012Q2

REPORT INFORMATION
  Report Type: 
  Country: None (occurrence: None)
  Receive Date: 20120504
  Receipt Date: 20120430
  Transmission Date: 20120825
  Serious: Yes (Other)
  Sender: FDA-Public Use
  Company Number: US-PFIZER INC-2012106504

PATIENT

DRUGS (5)
  1. KLONOPIN [Concomitant]
     Dosage: UNK
  2. ADDERALL 5 [Concomitant]
     Dosage: UNK
  3. LAMICTAL [Concomitant]
     Dosage: UNK
  4. LOVASTATIN [Concomitant]
     Dosage: UNK
  5. PRISTIQ [Suspect]
     Dosage: 100 MG, 1X/DAY (100 MG, TAKE ONE TABLET A DAY BY MOUTH)
     Route: 048

REACTIONS (4)
  - SYNOVIAL CYST [None]
  - CARPAL TUNNEL SYNDROME [None]
  - NERVE COMPRESSION [None]
  - BUNION [None]
